FAERS Safety Report 11758927 (Version 1)
Quarter: 2015Q4

REPORT INFORMATION
  Report Type: Spontaneous
  Country: TR (occurrence: TR)
  Receive Date: 20151120
  Receipt Date: 20151120
  Transmission Date: 20160304
  Serious: Yes (Hospitalization, Congenital Anomaly)
  Sender: FDA-Public Use
  Company Number: TR-JUBILANT CADISTA PHARMACEUTICALS-2015JUB00373

PATIENT
  Age: 1 Day
  Sex: Female
  Weight: 3.28 kg

DRUGS (1)
  1. LAMOTRIGINE. [Suspect]
     Active Substance: LAMOTRIGINE
     Indication: EPILEPSY
     Dosage: 500 MG, 1X/DAY
     Route: 064

REACTIONS (3)
  - Ventricular septal defect [Unknown]
  - Coarctation of the aorta [Unknown]
  - Pulmonary hypertension [Unknown]
